FAERS Safety Report 17968130 (Version 1)
Quarter: 2020Q3

REPORT INFORMATION
  Report Type: Report from Study
  Country: CA (occurrence: CA)
  Receive Date: 20200701
  Receipt Date: 20200701
  Transmission Date: 20201103
  Serious: Yes (Hospitalization)
  Sender: FDA-Public Use
  Company Number: CA-PFIZER INC-2020252271

PATIENT
  Sex: Male

DRUGS (4)
  1. PREDNISONE. [Suspect]
     Active Substance: PREDNISONE
     Dosage: UNK
     Route: 065
  2. SOLU?MEDROL [Suspect]
     Active Substance: METHYLPREDNISOLONE SODIUM SUCCINATE
     Route: 042
  3. BETNESOL [BETAMETHASONE SODIUM PHOSPHATE] [Suspect]
     Active Substance: BETAMETHASONE SODIUM PHOSPHATE
     Dosage: 5MG/100ML
     Route: 064
  4. MESALAMINE. [Suspect]
     Active Substance: MESALAMINE
     Dosage: 1.2 G, 4X/DAY
     Route: 065

REACTIONS (3)
  - Drug ineffective [Unknown]
  - Frequent bowel movements [Unknown]
  - Rectal haemorrhage [Unknown]
